FAERS Safety Report 7732299-8 (Version None)
Quarter: 2011Q3

REPORT INFORMATION
  Report Type: 
  Country: None (occurrence: None)
  Receive Date: 20110906
  Receipt Date: 20110712
  Transmission Date: 20111222
  Serious: Yes (Other)
  Sender: FDA-Public Use
  Company Number: US-ASTRAZENECA-2011SE41472

PATIENT
  Age: 83 Year
  Sex: Female

DRUGS (6)
  1. METOPROLOL SUCCINATE [Suspect]
     Dosage: GENERIC
     Route: 048
  2. METOPROLOL SUCCINATE [Suspect]
     Dosage: GENERIC
     Route: 048
  3. METOPROLOL SUCCINATE [Suspect]
     Indication: HEART RATE IRREGULAR
     Dosage: TOPROL XL, 37.5 MG TWO TIMES A DAY
     Route: 048
  4. PREDNISONE [Concomitant]
     Indication: ARTHRITIS
  5. METOPROLOL SUCCINATE [Suspect]
     Indication: HYPERTENSION
     Dosage: TOPROL XL, 37.5 MG TWO TIMES A DAY
     Route: 048
  6. DIURETIC [Concomitant]

REACTIONS (2)
  - DRUG INEFFECTIVE [None]
  - VENTRICULAR EXTRASYSTOLES [None]
